FAERS Safety Report 7292307-8 (Version None)
Quarter: 2011Q1

REPORT INFORMATION
  Report Type: 
  Country: None (occurrence: None)
  Receive Date: 20110210
  Receipt Date: 20110210
  Transmission Date: 20110831
  Serious: Yes (Other)
  Sender: FDA-Public Use
  Company Number: None

PATIENT
  Age: 58 Year
  Sex: Female
  Weight: 58.9676 kg

DRUGS (1)
  1. BONIVA [Suspect]
     Indication: OSTEOPOROSIS
     Dosage: 3 MG. 3 MONTHS INJECTION
     Dates: start: 20101222

REACTIONS (8)
  - MUSCULAR WEAKNESS [None]
  - SWELLING [None]
  - GINGIVAL PAIN [None]
  - DRUG HYPERSENSITIVITY [None]
  - MUSCULOSKELETAL PAIN [None]
  - MUSCULOSKELETAL STIFFNESS [None]
  - ACNE [None]
  - ARTHRALGIA [None]
